FAERS Safety Report 16177068 (Version 1)
Quarter: 2019Q2

REPORT INFORMATION
  Report Type: Spontaneous
  Country: US (occurrence: US)
  Receive Date: 20190409
  Receipt Date: 20190409
  Transmission Date: 20190711
  Serious: Yes (Hospitalization, Other)
  Sender: FDA-Public Use
  Company Number: US-UNITED THERAPEUTICS-UNT-2019-005418

PATIENT
  Age: 32 Year
  Sex: Female

DRUGS (2)
  1. TYVASO [Suspect]
     Active Substance: TREPROSTINIL
     Dosage: 60 ?G, QID
     Dates: start: 20181130
  2. TYVASO [Suspect]
     Active Substance: TREPROSTINIL
     Indication: PULMONARY ARTERIAL HYPERTENSION
     Dosage: 54 ?G, QID
     Dates: start: 20181201

REACTIONS (5)
  - Pulmonary oedema [Unknown]
  - Fungal pharyngitis [Unknown]
  - Pain [Unknown]
  - Fluid overload [Unknown]
  - Off label use [Unknown]

NARRATIVE: CASE EVENT DATE: 20190322
